FAERS Safety Report 14359495 (Version 2)
Quarter: 2018Q1

REPORT INFORMATION
  Report Type: Spontaneous
  Country: CZ (occurrence: CZ)
  Receive Date: 20180105
  Receipt Date: 20180122
  Transmission Date: 20180509
  Serious: Yes (Death, Hospitalization)
  Sender: FDA-Public Use
  Company Number: CZ-B.I. PHARMACEUTICALS,INC./RIDGEFIELD-2017-BI-007375

PATIENT
  Age: 83 Year
  Sex: Male

DRUGS (3)
  1. PRADAXA [Suspect]
     Active Substance: DABIGATRAN ETEXILATE MESYLATE
     Indication: ATRIAL FIBRILLATION
  2. PRADAXA [Suspect]
     Active Substance: DABIGATRAN ETEXILATE MESYLATE
     Indication: CEREBROVASCULAR ACCIDENT PROPHYLAXIS
     Route: 048
     Dates: start: 2013, end: 201606
  3. PRADAXA [Suspect]
     Active Substance: DABIGATRAN ETEXILATE MESYLATE
     Indication: ATRIAL FIBRILLATION
     Route: 065
     Dates: start: 2013, end: 2016

REACTIONS (7)
  - Renal failure [Fatal]
  - Coagulopathy [Recovered/Resolved with Sequelae]
  - Off label use [Recovered/Resolved]
  - Malignant neoplasm progression [Fatal]
  - Melaena [Recovered/Resolved]
  - Urosepsis [Fatal]
  - Bladder cancer recurrent [Fatal]

NARRATIVE: CASE EVENT DATE: 201606
